FAERS Safety Report 5225604-8 (Version None)
Quarter: 2007Q1

REPORT INFORMATION
  Report Type: 
  Country: None (occurrence: None)
  Receive Date: 20061201
  Receipt Date: 20061002
  Transmission Date: 20070707
  Serious: Yes (Hospitalization)
  Sender: FDA-Public Use
  Company Number: US200608004843

PATIENT
  Age: 58 Year
  Sex: Female
  Weight: 107 kg

DRUGS (4)
  1. CYMBALTA [Suspect]
     Dosage: SEE IMAGE
     Dates: end: 20060817
  2. CYMBALTA [Suspect]
     Dosage: SEE IMAGE
     Dates: start: 20060101
  3. LEXAPRO /USA/(ESCITALOPRAM) [Concomitant]
  4. MORPHINE [Concomitant]

REACTIONS (1)
  - SEROTONIN SYNDROME [None]
